FAERS Safety Report 9894451 (Version 3)
Quarter: 2014Q2

REPORT INFORMATION
  Report Type: Spontaneous
  Country: SE (occurrence: SE)
  Receive Date: 20140213
  Receipt Date: 20140417
  Transmission Date: 20141212
  Serious: No
  Sender: FDA-Public Use
  Company Number: SE-PFIZER INC-2014037996

PATIENT
  Age: 37 Year
  Sex: Female

DRUGS (2)
  1. DEPO-PROVERA [Suspect]
     Indication: CONTRACEPTION
     Dosage: UNK
     Route: 030
  2. DEPO-PROVERA [Suspect]
     Dosage: 150 MG, UNK
     Route: 030
     Dates: start: 20140109

REACTIONS (2)
  - Incorrect route of drug administration [Recovered/Resolved]
  - Injection site oedema [Recovered/Resolved]
